FAERS Safety Report 9039334 (Version 1)
Quarter: 2013Q1

REPORT INFORMATION
  Report Type: Report from Study
  Country: US (occurrence: US)
  Receive Date: 20130129
  Receipt Date: 20130129
  Transmission Date: 20140127
  Serious: No
  Sender: FDA-Public Use
  Company Number: US-ABBOTT-12P-163-0931592-00

PATIENT
  Age: 48 Year
  Sex: Male

DRUGS (6)
  1. HUMIRA 40 MG/0.8 ML PEN [Suspect]
     Indication: COLITIS ULCERATIVE
     Dates: start: 20120317
  2. HUMIRA 40 MG/0.8 ML PEN [Suspect]
     Dosage: TOOK  1 DAY LATE
     Dates: start: 20120429
  3. LIALDA [Concomitant]
     Indication: PRODUCT USED FOR UNKNOWN INDICATION
     Dosage: PATIENT THINKS THEY ARE 40 MG EACH - 4 TABLETS PER DAY
  4. ZOPOMIDE [Concomitant]
     Indication: GASTROINTESTINAL HYPOMOTILITY
  5. OTC MEGA RED (IT^S LIKE FISH OIL) [Concomitant]
     Indication: PRODUCT USED FOR UNKNOWN INDICATION
     Dosage: 1 DOSAGE FORM DAILY
  6. EMERGEN-C VITAMIN DRINK MIX [Concomitant]
     Indication: PROPHYLAXIS
     Dosage: MON - FRI ONLY

REACTIONS (6)
  - Cough [Recovered/Resolved]
  - Rhinorrhoea [Recovered/Resolved]
  - Nasal congestion [Recovered/Resolved]
  - Lower respiratory tract infection [Recovered/Resolved]
  - Oropharyngeal pain [Recovered/Resolved]
  - Diarrhoea [Recovered/Resolved]
